APPROVED DRUG PRODUCT: HYDROXYZINE HYDROCHLORIDE
Active Ingredient: HYDROXYZINE HYDROCHLORIDE
Strength: 25MG
Dosage Form/Route: TABLET;ORAL
Application: A040808 | Product #002 | TE Code: AB
Applicant: AMNEAL PHARMACEUTICAL
Approved: Sep 24, 2008 | RLD: No | RS: No | Type: RX